FAERS Safety Report 4562797-X (Version None)
Quarter: 2005Q1

REPORT INFORMATION
  Report Type: 
  Country: None (occurrence: None)
  Receive Date: 20050124
  Receipt Date: 20050113
  Transmission Date: 20050727
  Serious: Yes (Life-Threatening, Hospitalization)
  Sender: FDA-Public Use
  Company Number: 2005AL000167

PATIENT
  Age: 30 Year
  Sex: Male

DRUGS (11)
  1. KADIAN [Suspect]
     Dosage: PO
     Route: 048
     Dates: start: 20031001, end: 20040928
  2. ALLOPURINOL [Suspect]
     Dosage: PO
     Route: 048
     Dates: start: 20040601, end: 20040928
  3. ISONIAZID [Suspect]
     Dosage: PO
     Route: 048
     Dates: start: 20031001, end: 20040928
  4. RIFAMPIN [Suspect]
     Dosage: PO
     Route: 048
     Dates: start: 20031001, end: 20040928
  5. CLODRONATE DISODIUM [Suspect]
     Dosage: 800 MG QD PO
     Route: 048
     Dates: start: 20040615, end: 20040928
  6. AMITRIPTYLINE [Concomitant]
  7. GABAPENTIN [Concomitant]
  8. THYROXINE SODIUM [Concomitant]
  9. MACROGOL 4000 [Concomitant]
  10. BACLOFEN [Concomitant]
  11. OROPIVALONE BACITRACINE [Concomitant]

REACTIONS (7)
  - HYPOTHERMIA [None]
  - LUNG DISORDER [None]
  - RESPIRATORY DISTRESS [None]
  - RHINOLARYNGITIS [None]
  - SERRATIA SEPSIS [None]
  - THROMBOCYTOPENIA [None]
  - TRACHEAL STENOSIS [None]
